FAERS Safety Report 5103433-3 (Version None)
Quarter: 2006Q3

REPORT INFORMATION
  Report Type: 
  Country: None (occurrence: None)
  Receive Date: 20060731
  Receipt Date: 20060217
  Transmission Date: 20061208
  Serious: Yes (Other)
  Sender: FDA-Public Use
  Company Number: US-JNJFOC-20060204910

PATIENT
  Age: 46 Year
  Sex: Male
  Weight: 86.637 kg

DRUGS (4)
  1. RISPERDAL [Suspect]
     Indication: BIPOLAR I DISORDER
     Dosage: 6 MG , 1 IN 1 DAY
     Dates: start: 20050101
  2. DEPAKOTE [Concomitant]
  3. LOPRESSOR [Concomitant]
  4. MEVACOR [Concomitant]

REACTIONS (2)
  - BLOOD GLUCOSE INCREASED [None]
  - GLYCOSYLATED HAEMOGLOBIN INCREASED [None]
